FAERS Safety Report 24280671 (Version 8)
Quarter: 2025Q2

REPORT INFORMATION
  Report Type: Report from Study
  Country: US (occurrence: US)
  Receive Date: 20240904
  Receipt Date: 20250603
  Transmission Date: 20250717
  Serious: Yes (Other)
  Sender: UCB
  Company Number: US-UCBSA-2024043093

PATIENT
  Sex: Male
  Weight: 27 kg

DRUGS (24)
  1. FINTEPLA [Suspect]
     Active Substance: FENFLURAMINE
     Indication: Severe myoclonic epilepsy of infancy
     Dosage: 3.5 MILLILITER, 2X/DAY (BID)
     Dates: start: 20240730
  2. FINTEPLA [Suspect]
     Active Substance: FENFLURAMINE
     Indication: Lennox-Gastaut syndrome
     Dosage: 3.5 MILLILITER, 2X/DAY (BID)
     Dates: start: 2024, end: 20241215
  3. KEPPRA [Suspect]
     Active Substance: LEVETIRACETAM
     Indication: Product used for unknown indication
     Dosage: 7 ML(700 MILLIGRAM), 2X/DAY (BID), FEEDING TUBE
  4. VIMPAT [Suspect]
     Active Substance: LACOSAMIDE
     Indication: Product used for unknown indication
  5. ZONISAMIDE [Concomitant]
     Active Substance: ZONISAMIDE
     Indication: Product used for unknown indication
     Dosage: 100 MILLIGRAM, 2X/DAY (BID)
     Route: 048
  6. ZONISAMIDE [Concomitant]
     Active Substance: ZONISAMIDE
     Dosage: 50 MILLIGRAM, ONCE DAILY (QD)
  7. BACLOFEN [Concomitant]
     Active Substance: BACLOFEN
     Indication: Product used for unknown indication
     Dosage: 10 MILLIGRAM, 3X/DAY (TID)
     Route: 048
  8. CHILDREN^S ALL DAY ALLERGY [Concomitant]
     Indication: Product used for unknown indication
     Route: 048
  9. CALCIUM CARBONATE [Concomitant]
     Active Substance: CALCIUM CARBONATE
     Indication: Product used for unknown indication
     Dosage: 11.25 MILLILITER, ONCE DAILY (QD)
  10. CIPROFLOXACIN AND DEXAMETHASONE [Concomitant]
     Active Substance: CIPROFLOXACIN HYDROCHLORIDE\DEXAMETHASONE
     Indication: Product used for unknown indication
  11. DIAZEPAM [Concomitant]
     Active Substance: DIAZEPAM
     Indication: Product used for unknown indication
     Route: 054
  12. FLUTICASONE PROPIONATE\SALMETEROL XINAFOATE [Concomitant]
     Active Substance: FLUTICASONE PROPIONATE\SALMETEROL XINAFOATE
     Indication: Product used for unknown indication
  13. LACTULOSE [Concomitant]
     Active Substance: LACTULOSE
     Indication: Product used for unknown indication
     Dosage: 10 MILLIGRAM, 2X/DAY (BID), 10 MILLIGRAM (15 ML), FEEDING TUBE
  14. LEVALBUTEROL HYDROCHLORIDE [Concomitant]
     Active Substance: LEVALBUTEROL HYDROCHLORIDE
     Indication: Product used for unknown indication
  15. LORATADINE [Concomitant]
     Active Substance: LORATADINE
     Indication: Product used for unknown indication
     Route: 048
  16. MONTELUKAST [Concomitant]
     Active Substance: MONTELUKAST
  17. OMEPRAZOLE [Concomitant]
     Active Substance: OMEPRAZOLE
     Indication: Product used for unknown indication
     Dosage: 20 MILLIGRAM, ONCE DAILY (QD)
  18. PERAMPANEL [Concomitant]
     Active Substance: PERAMPANEL
     Indication: Product used for unknown indication
  19. SCOPOLAMINE [Concomitant]
     Active Substance: SCOPOLAMINE
     Indication: Product used for unknown indication
     Dosage: 20 MILLIGRAM, QHS EVERY BED TIME
     Route: 061
  20. SENNA LEAF [Concomitant]
     Active Substance: SENNA LEAF
     Indication: Product used for unknown indication
     Dosage: 10 MILLILITER, ONCE DAILY (QD)
  21. SODIUM PHOSPHATE DIBASIC (HEPTAHYDRATE);SODIUM PHOSPHATE MONOBASIC (MO [Concomitant]
     Indication: Product used for unknown indication
  22. ZOLEDRONIC ACID [Concomitant]
     Active Substance: ZOLEDRONIC ACID
     Indication: Product used for unknown indication
     Route: 042
  23. ONFI [Concomitant]
     Active Substance: CLOBAZAM
  24. FYCOMPA [Concomitant]
     Active Substance: PERAMPANEL
     Indication: Product used for unknown indication
     Dosage: 6 MILLILITER, ONCE DAILY (QD)

REACTIONS (8)
  - Seizure [Not Recovered/Not Resolved]
  - Pneumonia [Not Recovered/Not Resolved]
  - Seizure cluster [Unknown]
  - Myoclonus [Unknown]
  - Hypoxia [Unknown]
  - Somnolence [Recovering/Resolving]
  - Fatigue [Unknown]
  - Drug ineffective [Unknown]

NARRATIVE: CASE EVENT DATE: 20240101
